FAERS Safety Report 6617929-6 (Version None)
Quarter: 2010Q1

REPORT INFORMATION
  Report Type: 
  Country: None (occurrence: None)
  Receive Date: 20100308
  Receipt Date: 20090831
  Transmission Date: 20100710
  Serious: Yes (Death)
  Sender: FDA-Public Use
  Company Number: PHHY2009TW60808

PATIENT

DRUGS (1)
  1. EXJADE [Suspect]

REACTIONS (2)
  - CARDIAC FAILURE [None]
  - CHEST PAIN [None]
